FAERS Safety Report 6044567-9 (Version None)
Quarter: 2009Q1

REPORT INFORMATION
  Report Type: 
  Country: None (occurrence: None)
  Receive Date: 20090120
  Receipt Date: 20090108
  Transmission Date: 20090719
  Serious: Yes (Death)
  Sender: FDA-Public Use
  Company Number: JP-SANOFI-SYNTHELABO-A01200900319

PATIENT
  Age: 57 Year
  Sex: Female

DRUGS (4)
  1. FLUOROURACIL [Suspect]
     Dosage: 425MG/BODY IN BOLUS THEN 2800MG/BODY/D1-2 AS CONTINUOUS INFUSION
     Route: 040
     Dates: start: 20081219, end: 20081219
  2. FLUOROURACIL [Suspect]
     Route: 041
     Dates: start: 20081219, end: 20081219
  3. ISOVORIN [Suspect]
     Dosage: UNK
     Route: 041
     Dates: start: 20081219, end: 20081219
  4. ELPLAT [Suspect]
     Indication: LARGE INTESTINE CARCINOMA
     Route: 041
     Dates: start: 20081219, end: 20081219

REACTIONS (1)
  - ALTERED STATE OF CONSCIOUSNESS [None]
